FAERS Safety Report 7573373-9 (Version None)
Quarter: 2011Q2

REPORT INFORMATION
  Report Type: 
  Country: None (occurrence: None)
  Receive Date: 20110627
  Receipt Date: 20110615
  Transmission Date: 20111010
  Serious: Yes (Other)
  Sender: FDA-Public Use
  Company Number: US-RB-026303-11

PATIENT
  Sex: Female

DRUGS (1)
  1. DELSYM [Suspect]
     Dosage: PATIENT HAS DRUNK MULTILPE BOTTLES
     Route: 048

REACTIONS (4)
  - FEELING ABNORMAL [None]
  - DISORIENTATION [None]
  - DRUG ABUSE [None]
  - SOMNOLENCE [None]
